FAERS Safety Report 5487302-5 (Version None)
Quarter: 2007Q4

REPORT INFORMATION
  Report Type: 
  Country: None (occurrence: None)
  Receive Date: 20071016
  Receipt Date: 20071010
  Transmission Date: 20080405
  Serious: Yes (Hospitalization)
  Sender: FDA-Public Use
  Company Number: US-MERCK-0710USA02688

PATIENT
  Age: 74 Year
  Sex: Female

DRUGS (10)
  1. JANUVIA [Suspect]
     Indication: TYPE 2 DIABETES MELLITUS
     Route: 048
     Dates: start: 20071004, end: 20071010
  2. LORTAB [Concomitant]
     Route: 065
  3. ASPIRIN [Concomitant]
     Route: 065
  4. TIAZAC [Concomitant]
     Route: 065
  5. XANAX [Concomitant]
     Route: 065
  6. PROTONIX [Concomitant]
     Route: 065
  7. CARAFATE [Concomitant]
     Route: 065
  8. CRESTOR [Concomitant]
     Route: 065
  9. IMDUR [Concomitant]
     Route: 065
  10. CLONAZEPAM [Concomitant]
     Route: 065

REACTIONS (5)
  - DIARRHOEA [None]
  - DYSPNOEA [None]
  - HEADACHE [None]
  - NAUSEA [None]
  - WRONG TECHNIQUE IN DRUG USAGE PROCESS [None]
